FAERS Safety Report 25635929 (Version 1)
Quarter: 2025Q3

REPORT INFORMATION
  Report Type: Spontaneous
  Country: GB (occurrence: GB)
  Receive Date: 20250802
  Receipt Date: 20250802
  Transmission Date: 20251020
  Serious: Yes (Congenital Anomaly, Other)
  Sender: AUROBINDO
  Company Number: GB-MHRA-MED-202507231429477740-RYJCV

PATIENT
  Age: 8 Year
  Sex: Male

DRUGS (1)
  1. FLUOXETINE [Suspect]
     Active Substance: FLUOXETINE HYDROCHLORIDE
     Indication: Product used for unknown indication
     Route: 065

REACTIONS (1)
  - Developmental delay [Not Recovered/Not Resolved]
